FAERS Safety Report 11773769 (Version 15)
Quarter: 2016Q3

REPORT INFORMATION
  Report Type: Report from Study
  Country: AT (occurrence: AT)
  Receive Date: 20151124
  Receipt Date: 20160929
  Transmission Date: 20161109
  Serious: Yes (Hospitalization)
  Sender: FDA-Public Use
  Company Number: AT-ROCHE-1665328

PATIENT
  Age: 70 Year
  Sex: Male
  Weight: 70 kg

DRUGS (102)
  1. AMLODIPIN [Concomitant]
     Active Substance: AMLODIPINE BESYLATE
     Indication: HYPERTENSION
     Route: 048
     Dates: start: 20151028, end: 20151028
  2. AMLODIPIN [Concomitant]
     Active Substance: AMLODIPINE BESYLATE
     Route: 048
     Dates: start: 20160424
  3. CALCIUM GLYCEROPHOSPHATE\CELLULOSE\POLYETHYLENE GLYCOL\SACCHARIN SODIUM\SODIUM HYDROXIDE\SODIUM LAURYL SULFATE\SODIUM MAGNESIUM SILICATE\SODIUM MONOFLUOROPHOSPHATE\SORBITOL\WATER [Concomitant]
     Active Substance: CALCIUM GLYCEROPHOSPHATE\POLYETHYLENE GLYCOLS\POWDERED CELLULOSE\SACCHARIN SODIUM DIHYDRATE\SODIUM HYDROXIDE\SODIUM LAURYL SULFATE\SODIUM MAGNESIUM SILICATE\SODIUM MONOFLUOROPHOSPHATE\SORBITOL\WATER
     Indication: CONSTIPATION
     Dosage: DOSE: 1 (UNIT: OTHER)
     Route: 048
     Dates: start: 20160320, end: 20160330
  4. SUFENTA [Concomitant]
     Active Substance: SUFENTANIL CITRATE
     Route: 042
     Dates: start: 20160404, end: 20160404
  5. LASIX [Concomitant]
     Active Substance: FUROSEMIDE
     Route: 042
     Dates: start: 20160408, end: 20160408
  6. GLUCOSE-1-PHOSPHATE [Concomitant]
     Indication: RENAL FAILURE
     Route: 042
     Dates: start: 20160326, end: 20160331
  7. GLUCOSE-1-PHOSPHATE [Concomitant]
     Route: 042
     Dates: start: 20160411, end: 20160421
  8. PROPOFOL MCT FRESENIUS [Concomitant]
     Route: 042
     Dates: start: 20160320, end: 20160320
  9. AMLODIPIN [Concomitant]
     Active Substance: AMLODIPINE BESYLATE
     Indication: HYPERTENSION
     Route: 048
     Dates: start: 20151021, end: 20151027
  10. AMLODIPIN [Concomitant]
     Active Substance: AMLODIPINE BESYLATE
     Route: 048
     Dates: start: 20160406, end: 20160421
  11. TAZONAM [Concomitant]
     Active Substance: TAZOBACTAM
     Indication: PYREXIA
     Route: 042
     Dates: start: 20151028, end: 20151030
  12. LOVENOX [Concomitant]
     Active Substance: ENOXAPARIN SODIUM
     Route: 058
     Dates: start: 20160318, end: 20160620
  13. LACTULOSE. [Concomitant]
     Active Substance: LACTULOSE
     Indication: CONSTIPATION
     Route: 048
     Dates: start: 20160422, end: 20160422
  14. VANCOMYCIN [Concomitant]
     Active Substance: VANCOMYCIN
     Route: 042
     Dates: start: 20160413, end: 20160414
  15. ACTRAPID [Concomitant]
     Active Substance: INSULIN HUMAN
     Route: 042
     Dates: start: 20160427, end: 20160427
  16. CONCOR COR [Concomitant]
     Active Substance: BISOPROLOL FUMARATE
     Route: 048
     Dates: start: 20160407, end: 20160501
  17. PARACETAMOL [Concomitant]
     Active Substance: ACETAMINOPHEN
     Route: 042
     Dates: start: 20160406, end: 20160408
  18. KALIUM-L-MALAT [Concomitant]
     Indication: HYPOKALAEMIA
     Route: 042
     Dates: start: 20160322, end: 20160323
  19. DEXDOR [Concomitant]
     Active Substance: DEXMEDETOMIDINE HYDROCHLORIDE
     Route: 042
     Dates: start: 20160401, end: 20160410
  20. DOMINAL FORTE [Concomitant]
     Active Substance: PROTHIPENDYL HYDROCHLORIDE
     Indication: SLEEP DISORDER
     Route: 048
     Dates: start: 20160427, end: 20160427
  21. VENETOCLAX [Suspect]
     Active Substance: VENETOCLAX
     Indication: CHRONIC LYMPHOCYTIC LEUKAEMIA
     Dosage: MOST RECENT DOSE OF GDC-0199 (BCL-2 SELECTIVE INHIBITOR) PRIOR TO PNEUMOCYSTOSIS: 400 MG, ON 08/MAR/
     Route: 048
     Dates: start: 20151123
  22. AMLODIPIN [Concomitant]
     Active Substance: AMLODIPINE BESYLATE
     Indication: HYPERTENSION
     Route: 048
     Dates: start: 20151029, end: 20151111
  23. AMLODIPIN [Concomitant]
     Active Substance: AMLODIPINE BESYLATE
     Indication: HYPERTENSION
     Route: 048
     Dates: start: 20151113, end: 20160308
  24. AMLODIPIN [Concomitant]
     Active Substance: AMLODIPINE BESYLATE
     Route: 048
     Dates: start: 20160322, end: 20160405
  25. FENTANYL. [Concomitant]
     Active Substance: FENTANYL
     Indication: ANALGESIC THERAPY
     Route: 042
     Dates: start: 20160320, end: 20160320
  26. KETANEST [Concomitant]
     Active Substance: KETAMINE HYDROCHLORIDE
     Indication: ANALGESIC THERAPY
     Route: 042
     Dates: start: 20160408, end: 20160408
  27. RED BLOOD CELLS [Concomitant]
     Active Substance: HUMAN RED BLOOD CELL
     Route: 042
     Dates: start: 20160412, end: 20160412
  28. LIDAPRIM [Concomitant]
     Indication: C-REACTIVE PROTEIN INCREASED
     Route: 042
     Dates: start: 20160320, end: 20160320
  29. DOXAZOSIN [Concomitant]
     Active Substance: DOXAZOSIN\DOXAZOSIN MESYLATE
     Route: 048
     Dates: start: 20160330, end: 20160330
  30. ESMERON [Concomitant]
     Active Substance: ROCURONIUM BROMIDE
     Indication: ENDOTRACHEAL INTUBATION
     Route: 042
     Dates: start: 20160320, end: 20160320
  31. FURON [Concomitant]
     Active Substance: FUROSEMIDE
     Indication: RENAL FAILURE
     Route: 042
     Dates: start: 20160331, end: 20160404
  32. DORMICUM [Concomitant]
     Active Substance: MIDAZOLAM\MIDAZOLAM HYDROCHLORIDE
     Route: 042
     Dates: start: 20160423, end: 20160423
  33. DORMICUM [Concomitant]
     Active Substance: MIDAZOLAM\MIDAZOLAM HYDROCHLORIDE
     Route: 042
     Dates: start: 20160321, end: 20160321
  34. PRAXITEN [Concomitant]
     Active Substance: OXAZEPAM
     Route: 048
     Dates: start: 20160410, end: 20160426
  35. SEROQUEL [Concomitant]
     Active Substance: QUETIAPINE FUMARATE
     Route: 048
     Dates: start: 20160331, end: 20160427
  36. PROPOFOL MCT FRESENIUS [Concomitant]
     Indication: SEDATION
     Route: 042
     Dates: start: 20160322, end: 20160324
  37. LISINOPRIL. [Concomitant]
     Active Substance: LISINOPRIL
     Indication: HYPERTENSION
     Route: 048
     Dates: start: 2010, end: 20151111
  38. OLEOVIT D3 [Concomitant]
     Active Substance: CHOLECALCIFEROL
     Indication: VITAMIN D DEFICIENCY
     Route: 048
     Dates: start: 20151027, end: 20160308
  39. ALLOPURINOL. [Concomitant]
     Active Substance: ALLOPURINOL
     Indication: HYPERURICAEMIA
     Route: 048
     Dates: start: 201507, end: 20160307
  40. PERFALGAN [Concomitant]
     Active Substance: ACETAMINOPHEN
     Indication: PYREXIA
     Route: 042
     Dates: start: 20160316, end: 20160317
  41. PANTOLOC [Concomitant]
     Active Substance: PANTOPRAZOLE SODIUM
     Route: 042
     Dates: start: 20160401, end: 20160413
  42. KETANEST [Concomitant]
     Active Substance: KETAMINE HYDROCHLORIDE
     Route: 042
     Dates: start: 20160425, end: 20160425
  43. RED BLOOD CELLS [Concomitant]
     Active Substance: HUMAN RED BLOOD CELL
     Indication: ANAEMIA
     Route: 042
     Dates: start: 20160406, end: 20160406
  44. VANCOMYCIN [Concomitant]
     Active Substance: VANCOMYCIN
     Indication: C-REACTIVE PROTEIN INCREASED
     Route: 042
     Dates: start: 20160413, end: 20160413
  45. TENORMIN [Concomitant]
     Active Substance: ATENOLOL
     Route: 048
     Dates: start: 20160322, end: 20160330
  46. ARTERENOL [Concomitant]
     Active Substance: NORADRENALINE HYDROCHLORIDE
     Route: 042
     Dates: start: 20160401, end: 20160403
  47. CLONIDINE HYDROCHLORIDE. [Concomitant]
     Active Substance: CLONIDINE HYDROCHLORIDE
     Route: 042
     Dates: start: 20160412, end: 20160420
  48. CATAPRESSAN [Concomitant]
     Active Substance: CLONIDINE
     Route: 042
     Dates: start: 20160410, end: 20160421
  49. LASIX [Concomitant]
     Active Substance: FUROSEMIDE
     Indication: RENAL FAILURE
     Route: 042
     Dates: start: 20160325, end: 20160325
  50. LISINOPRIL. [Concomitant]
     Active Substance: LISINOPRIL
     Indication: HYPERTENSION
     Route: 048
     Dates: start: 20151113, end: 20151115
  51. CALCITONIN [Concomitant]
     Active Substance: CALCITONIN
     Indication: HYPERCALCAEMIA
     Route: 058
     Dates: start: 20160309, end: 20160311
  52. AGAFFIN [Concomitant]
     Indication: CONSTIPATION
     Route: 048
     Dates: start: 20160321, end: 20160321
  53. SUFENTA [Concomitant]
     Active Substance: SUFENTANIL CITRATE
     Indication: ANALGESIC THERAPY
     Route: 042
     Dates: start: 20160320, end: 20160327
  54. RED BLOOD CELLS [Concomitant]
     Active Substance: HUMAN RED BLOOD CELL
     Route: 042
     Dates: start: 20160408, end: 20160408
  55. RED BLOOD CELLS [Concomitant]
     Active Substance: HUMAN RED BLOOD CELL
     Route: 042
     Dates: start: 20160418, end: 20160418
  56. TYGACIL [Concomitant]
     Active Substance: TIGECYCLINE
     Route: 042
     Dates: start: 20160424, end: 20160424
  57. DOXAZOSIN [Concomitant]
     Active Substance: DOXAZOSIN\DOXAZOSIN MESYLATE
     Route: 048
     Dates: start: 20160329, end: 20160329
  58. PASPERTIN (AUSTRIA) [Concomitant]
     Indication: NAUSEA
     Route: 042
     Dates: start: 20160330, end: 20160331
  59. DEXDOR [Concomitant]
     Active Substance: DEXMEDETOMIDINE HYDROCHLORIDE
     Route: 042
     Dates: start: 20160327, end: 20160330
  60. SEROQUEL [Concomitant]
     Active Substance: QUETIAPINE FUMARATE
     Route: 048
     Dates: start: 20160328, end: 20160330
  61. OBINUTUZUMAB [Suspect]
     Active Substance: OBINUTUZUMAB
     Indication: CHRONIC LYMPHOCYTIC LEUKAEMIA
     Dosage: MOST RECENT DOSE PRIOR TO  FATIGUE AND (CMV) REACTIVATION: 11/NOV/2015 AT 13:30 1000 MG?MOST RECENT
     Route: 042
     Dates: start: 20151027
  62. PERFALGAN [Concomitant]
     Active Substance: ACETAMINOPHEN
     Indication: HEADACHE
     Route: 042
     Dates: start: 20151028, end: 20151028
  63. LOVENOX [Concomitant]
     Active Substance: ENOXAPARIN SODIUM
     Indication: THROMBOSIS PROPHYLAXIS
     Route: 058
     Dates: start: 20160317, end: 20160317
  64. CALCIUM GLYCEROPHOSPHATE\CELLULOSE\POLYETHYLENE GLYCOL\SACCHARIN SODIUM\SODIUM HYDROXIDE\SODIUM LAURYL SULFATE\SODIUM MAGNESIUM SILICATE\SODIUM MONOFLUOROPHOSPHATE\SORBITOL\WATER [Concomitant]
     Active Substance: CALCIUM GLYCEROPHOSPHATE\POLYETHYLENE GLYCOLS\POWDERED CELLULOSE\SACCHARIN SODIUM DIHYDRATE\SODIUM HYDROXIDE\SODIUM LAURYL SULFATE\SODIUM MAGNESIUM SILICATE\SODIUM MONOFLUOROPHOSPHATE\SORBITOL\WATER
     Indication: CONSTIPATION
  65. TYGACIL [Concomitant]
     Active Substance: TIGECYCLINE
     Route: 042
     Dates: start: 20160416, end: 20160421
  66. ACTRAPID [Concomitant]
     Active Substance: INSULIN HUMAN
     Indication: HYPERGLYCAEMIA
     Dosage: GRAIN
     Route: 042
     Dates: start: 20160321, end: 20160404
  67. DOXAZOSIN [Concomitant]
     Active Substance: DOXAZOSIN\DOXAZOSIN MESYLATE
     Indication: HYPERTENSION
     Route: 048
     Dates: start: 20160322, end: 20160322
  68. NOVAMINSULFON [Concomitant]
     Active Substance: METAMIZOLE
     Indication: PAIN
     Route: 042
     Dates: start: 20160406, end: 20160406
  69. PARACETAMOL [Concomitant]
     Active Substance: ACETAMINOPHEN
     Route: 042
     Dates: start: 20160410, end: 20160410
  70. CLONIDINE HYDROCHLORIDE. [Concomitant]
     Active Substance: CLONIDINE HYDROCHLORIDE
     Route: 042
     Dates: start: 20160320, end: 20160327
  71. ATOSIL (AUSTRIA) [Concomitant]
     Route: 042
     Dates: start: 20160407, end: 20160414
  72. MIDAZOLAM [Concomitant]
     Active Substance: MIDAZOLAM\MIDAZOLAM HYDROCHLORIDE
     Indication: SEDATION
     Route: 042
     Dates: start: 20160408, end: 20160408
  73. LASIX [Concomitant]
     Active Substance: FUROSEMIDE
     Indication: RENAL FAILURE
     Route: 042
     Dates: start: 20160320, end: 20160322
  74. LASIX [Concomitant]
     Active Substance: FUROSEMIDE
     Route: 042
     Dates: start: 20160323, end: 20160323
  75. NATRIUMGLYCEROFOSFAT [Concomitant]
     Indication: RENAL FAILURE
     Route: 042
     Dates: start: 20160407, end: 20160407
  76. PROPOFOL MCT FRESENIUS [Concomitant]
     Dosage: AS REQUIRED
     Route: 042
     Dates: start: 20160401, end: 20160406
  77. ALLOPURINOL. [Concomitant]
     Active Substance: ALLOPURINOL
     Dosage: UROSIN
     Route: 048
     Dates: start: 20160308
  78. PREDNISOLUT [Concomitant]
     Active Substance: PREDNISOLONE
     Indication: PREMEDICATION
     Route: 042
     Dates: start: 20151027, end: 20160218
  79. MEXALEN [Concomitant]
     Active Substance: ACETAMINOPHEN
     Indication: PREMEDICATION
     Route: 048
     Dates: start: 20151027, end: 20160218
  80. DIBONDRIN [Concomitant]
     Active Substance: DIPHENHYDRAMINE HYDROCHLORIDE
     Indication: PREMEDICATION
     Route: 042
     Dates: start: 20151027, end: 20160218
  81. CEFEPIME [Concomitant]
     Active Substance: CEFEPIME HYDROCHLORIDE
     Indication: C-REACTIVE PROTEIN INCREASED
     Route: 042
     Dates: start: 20160320, end: 20160406
  82. ACTRAPID [Concomitant]
     Active Substance: INSULIN HUMAN
     Route: 042
     Dates: start: 20160409, end: 20160424
  83. CONCOR COR [Concomitant]
     Active Substance: BISOPROLOL FUMARATE
     Indication: HYPERTENSION
     Route: 048
     Dates: start: 20160405, end: 20160406
  84. ARTERENOL [Concomitant]
     Active Substance: NORADRENALINE HYDROCHLORIDE
     Route: 042
     Dates: start: 20160408, end: 20160409
  85. KALIUM-L-MALAT [Concomitant]
     Route: 042
     Dates: start: 20160403, end: 20160404
  86. DORMICUM [Concomitant]
     Active Substance: MIDAZOLAM\MIDAZOLAM HYDROCHLORIDE
     Route: 042
     Dates: start: 20160320, end: 20160320
  87. PROPOFOL MCT FRESENIUS [Concomitant]
     Dosage: AS REQUIRED
     Route: 042
     Dates: start: 20160320, end: 20160327
  88. PANTOLOC [Concomitant]
     Active Substance: PANTOPRAZOLE SODIUM
     Indication: GASTRIC ULCER
     Route: 042
     Dates: start: 20160320, end: 20160324
  89. AGAFFIN [Concomitant]
     Route: 048
     Dates: start: 20160404, end: 20160413
  90. RED BLOOD CELLS [Concomitant]
     Active Substance: HUMAN RED BLOOD CELL
     Route: 042
     Dates: start: 20160410, end: 20160410
  91. ECALTA [Concomitant]
     Active Substance: ANIDULAFUNGIN
     Indication: C-REACTIVE PROTEIN INCREASED
     Route: 042
     Dates: start: 20160405, end: 20160406
  92. ARTERENOL [Concomitant]
     Active Substance: NORADRENALINE HYDROCHLORIDE
     Indication: HYPOTENSION
     Route: 042
     Dates: start: 20160320, end: 20160322
  93. RATIOGRASTIM [Concomitant]
     Active Substance: FILGRASTIM
     Indication: NEUTROPENIA
     Dosage: 30 MIO (IU)
     Route: 058
     Dates: start: 20160410, end: 20160417
  94. NOVAMINSULFON [Concomitant]
     Active Substance: METAMIZOLE
     Route: 042
     Dates: start: 20160415, end: 20160415
  95. PARACETAMOL [Concomitant]
     Active Substance: ACETAMINOPHEN
     Indication: PAIN
     Route: 042
     Dates: start: 20160405, end: 20160405
  96. PARACETAMOL [Concomitant]
     Active Substance: ACETAMINOPHEN
     Route: 042
     Dates: start: 20160409, end: 20160409
  97. KALIUM-L-MALAT [Concomitant]
     Route: 042
     Dates: start: 20160406, end: 20160414
  98. DORMICUM [Concomitant]
     Active Substance: MIDAZOLAM\MIDAZOLAM HYDROCHLORIDE
     Route: 042
     Dates: start: 20160411, end: 20160411
  99. MIDAZOLAM [Concomitant]
     Active Substance: MIDAZOLAM\MIDAZOLAM HYDROCHLORIDE
     Route: 042
     Dates: start: 20160412, end: 20160412
  100. MIDAZOLAM [Concomitant]
     Active Substance: MIDAZOLAM\MIDAZOLAM HYDROCHLORIDE
     Route: 042
     Dates: start: 20160425, end: 20160425
  101. DIAMOX SEQUELS [Concomitant]
     Active Substance: ACETAZOLAMIDE
     Indication: RENAL FAILURE
     Route: 042
     Dates: start: 20160406, end: 20160406
  102. DIAMOX SEQUELS [Concomitant]
     Active Substance: ACETAZOLAMIDE
     Route: 042
     Dates: start: 20160409, end: 20160409

REACTIONS (3)
  - Pneumocystis jirovecii pneumonia [Recovered/Resolved]
  - Fatigue [Recovered/Resolved]
  - Cytomegalovirus infection [Recovered/Resolved]

NARRATIVE: CASE EVENT DATE: 20151115
